FAERS Safety Report 21602532 (Version 2)
Quarter: 2022Q4

REPORT INFORMATION
  Report Type: Spontaneous
  Country: RU (occurrence: RU)
  Receive Date: 20221116
  Receipt Date: 20221128
  Transmission Date: 20230112
  Serious: Yes (Other)
  Sender: FDA-Public Use
  Company Number: RU-MYLANLABS-2022M1126077

PATIENT

DRUGS (2)
  1. LYRICA [Suspect]
     Active Substance: PREGABALIN
     Indication: Pelvic pain
     Dosage: UNK
     Route: 065
  2. LYRICA [Suspect]
     Active Substance: PREGABALIN
     Dosage: 50 MILLIGRAM
     Route: 065

REACTIONS (10)
  - Polyneuropathy [Unknown]
  - Distractibility [Unknown]
  - Confusional state [Unknown]
  - Panic attack [Unknown]
  - Pain [Unknown]
  - Muscle spasms [Unknown]
  - Anxiety [Unknown]
  - Speech disorder [Unknown]
  - Dry mouth [Unknown]
  - Drug ineffective [Unknown]
